FAERS Safety Report 10019354 (Version 1)
Quarter: 2014Q1

REPORT INFORMATION
  Report Type: Spontaneous
  Country: IT (occurrence: IT)
  Receive Date: 20140318
  Receipt Date: 20140318
  Transmission Date: 20141002
  Serious: Yes (Hospitalization)
  Sender: FDA-Public Use
  Company Number: IT-TAKEDA-2014TUS001871

PATIENT
  Sex: 0

DRUGS (9)
  1. ADENURIC [Suspect]
     Indication: HYPERURICAEMIA
     Dosage: 80 MG, 1 IN 1 D
     Route: 048
     Dates: start: 20140221, end: 20140301
  2. NEBIVOLOL [Concomitant]
  3. ESKIM [Concomitant]
  4. MONOKET [Concomitant]
  5. PARIET [Concomitant]
  6. LOBIVON [Concomitant]
  7. CARDIOASPIRIN [Concomitant]
  8. CLEXANE [Concomitant]
  9. NEXIUM                             /01479302/ [Concomitant]

REACTIONS (3)
  - Psychomotor hyperactivity [Recovering/Resolving]
  - Gravitational oedema [Recovering/Resolving]
  - Malaise [Recovering/Resolving]
